FAERS Safety Report 23436656 (Version 1)
Quarter: 2024Q1

REPORT INFORMATION
  Report Type: Spontaneous
  Country: US (occurrence: US)
  Receive Date: 20240124
  Receipt Date: 20240124
  Transmission Date: 20240410
  Serious: Yes (Hospitalization, Other)
  Sender: FDA-Public Use
  Company Number: US-UCBSA-2024002975

PATIENT
  Sex: Female

DRUGS (4)
  1. BIMEKIZUMAB [Suspect]
     Active Substance: BIMEKIZUMAB
     Indication: Psoriasis
     Dosage: 320 MILLIGRAM (LOADING DOSE)
     Dates: start: 20231218
  2. BIMEKIZUMAB [Suspect]
     Active Substance: BIMEKIZUMAB
     Indication: Psoriatic arthropathy
  3. BIMEKIZUMAB [Suspect]
     Active Substance: BIMEKIZUMAB
     Indication: Off label use
  4. METHOTREXATE [Concomitant]
     Active Substance: METHOTREXATE
     Indication: Product used for unknown indication
     Dosage: 22.5 MILLIGRAM, WEEKLY (QW)

REACTIONS (5)
  - Rectal abscess [Unknown]
  - Sepsis [Unknown]
  - Abscess drainage [Unknown]
  - Haemorrhoids [Unknown]
  - Off label use [Unknown]

NARRATIVE: CASE EVENT DATE: 20231218
